FAERS Safety Report 6914159-5 (Version None)
Quarter: 2010Q3

REPORT INFORMATION
  Report Type: 
  Country: None (occurrence: None)
  Receive Date: 20100806
  Receipt Date: 20100806
  Transmission Date: 20110219
  Serious: Yes (Other)
  Sender: FDA-Public Use
  Company Number: None

PATIENT
  Sex: Female
  Weight: 70.3075 kg

DRUGS (4)
  1. METHYLPREDNISOLONE [Suspect]
     Indication: RADIATION INJURY
     Dosage: 4MG DOSE X 6 DAYS
     Dates: start: 20100702, end: 20100708
  2. METHYLPREDNISOLONE [Suspect]
     Indication: SKIN LESION
     Dosage: 4MG DOSE X 6 DAYS
     Dates: start: 20100702, end: 20100708
  3. LEVAQUIN [Suspect]
     Indication: SINUSITIS
     Dosage: 1 TAB DAILY 10 (500MG)
     Dates: start: 20100716, end: 20100720
  4. CADISTA [Concomitant]

REACTIONS (5)
  - CATARACT [None]
  - CONDITION AGGRAVATED [None]
  - SINUSITIS [None]
  - VISION BLURRED [None]
  - VISUAL IMPAIRMENT [None]
